FAERS Safety Report 9445246 (Version 1)
Quarter: 2013Q3

REPORT INFORMATION
  Report Type: Spontaneous
  Country: JP (occurrence: JP)
  Receive Date: 20130807
  Receipt Date: 20130807
  Transmission Date: 20140515
  Serious: Yes (Other)
  Sender: FDA-Public Use
  Company Number: JP-GLAXOSMITHKLINE-B0912888A

PATIENT
  Sex: Female

DRUGS (2)
  1. FLOLAN [Suspect]
     Route: 042
  2. TADALAFIL [Suspect]
     Route: 048

REACTIONS (4)
  - Cardiac failure [Unknown]
  - Hypoxia [Unknown]
  - Exposure during pregnancy [Unknown]
  - Live birth [Unknown]
